FAERS Safety Report 9068763 (Version 2)
Quarter: 2013Q1

REPORT INFORMATION
  Report Type: Spontaneous
  Country: IT (occurrence: None)
  Receive Date: 20130122
  Receipt Date: 20130206
  Transmission Date: 20140127
  Serious: Yes (Hospitalization, Other)
  Sender: FDA-Public Use
  Company Number: DSA_62001_2013

PATIENT
  Age: 72 Year
  Sex: Male

DRUGS (11)
  1. FLUOROURACIL (FLUOROURACIL) [Suspect]
     Indication: COLORECTAL CANCER METASTATIC
     Route: 040
     Dates: start: 20121115, end: 20121115
  2. AFLIBERCEPT (AFLIBERCEPT) SOLUTION FOR INJECTION [Suspect]
     Indication: COLORECTAL CANCER METASTATIC
     Dosage: EVERY OTHER WEEK INTRAVENOUS (NOT OTHERWISE SPECIFIED))
     Route: 042
     Dates: start: 20121115, end: 20121115
  3. IRINOTECAN (IRINOTECAN) [Suspect]
     Indication: COLORECTAL CANCER METASTATIC
     Route: 042
     Dates: start: 20121115, end: 20121115
  4. LEUCOVORIN /00566701/ (LEUCOVORIN-FOLINIC ACID) [Suspect]
     Route: 042
     Dates: start: 20121115, end: 20121115
  5. ACE INHIBITORS [Concomitant]
  6. DIURETICS [Concomitant]
  7. LANSOPRAZOLE [Concomitant]
  8. INSULIN [Concomitant]
  9. DIGOXIN [Concomitant]
  10. TAPAZOLE [Concomitant]
  11. ANTIBIOTICS [Concomitant]

REACTIONS (10)
  - Ileus paralytic [None]
  - Subileus [None]
  - Hypokalaemia [None]
  - Shock [None]
  - Atrial flutter [None]
  - General physical health deterioration [None]
  - Blood alkaline phosphatase increased [None]
  - Blood phosphorus decreased [None]
  - Bundle branch block right [None]
  - Ventricular extrasystoles [None]
